FAERS Safety Report 7349910-6 (Version None)
Quarter: 2011Q1

REPORT INFORMATION
  Report Type: 
  Country: None (occurrence: None)
  Receive Date: 20110314
  Receipt Date: 20110308
  Transmission Date: 20110831
  Serious: Yes (Death, Other)
  Sender: FDA-Public Use
  Company Number: CZ-GENZYME-CAMP-1001456

PATIENT
  Age: 4 Month
  Sex: Male

DRUGS (1)
  1. CAMPATH [Suspect]
     Indication: STEM CELL TRANSPLANT
     Dosage: UNK
     Route: 065

REACTIONS (2)
  - ACUTE GRAFT VERSUS HOST DISEASE IN SKIN [None]
  - PARAINFLUENZAE VIRUS INFECTION [None]
